FAERS Safety Report 18403937 (Version 1)
Quarter: 2020Q4

REPORT INFORMATION
  Report Type: Spontaneous
  Country: US (occurrence: US)
  Receive Date: 20201020
  Receipt Date: 20201020
  Transmission Date: 20210114
  Serious: No
  Sender: FDA-Public Use
  Company Number: None

PATIENT
  Sex: Female

DRUGS (1)
  1. CVS CAPSAICIN ARTHRITIS PAIN RELIEF [Suspect]
     Active Substance: CAPSAICIN
     Indication: ARTHRITIS
     Dosage: ?          QUANTITY:1 OUNCE(S);OTHER FREQUENCY:SHE USED IT ONCE;?
     Route: 061
     Dates: start: 20201018, end: 20201019

REACTIONS (2)
  - Burning sensation [None]
  - Diarrhoea [None]

NARRATIVE: CASE EVENT DATE: 20201018
